FAERS Safety Report 16898103 (Version 5)
Quarter: 2019Q4

REPORT INFORMATION
  Report Type: Spontaneous
  Country: ES (occurrence: ES)
  Receive Date: 20191009
  Receipt Date: 20191030
  Transmission Date: 20200122
  Serious: Yes (Other)
  Sender: FDA-Public Use
  Company Number: ES-PFIZER INC-2019433087

PATIENT
  Age: 64 Year
  Sex: Male
  Weight: 70 kg

DRUGS (15)
  1. VORICONAZOL NORMON [Suspect]
     Active Substance: VORICONAZOLE
     Indication: PNEUMONIA
  2. IRON [Concomitant]
     Active Substance: IRON
     Dosage: UNK
  3. BEMIPARIN [Concomitant]
     Active Substance: BEMIPARIN
     Dosage: UNK
  4. PARACETAMOL [Concomitant]
     Active Substance: ACETAMINOPHEN
     Dosage: UNK
  5. PIPERACILLIN. [Concomitant]
     Active Substance: PIPERACILLIN SODIUM
  6. VORICONAZOL NORMON [Suspect]
     Active Substance: VORICONAZOLE
     Indication: RESPIRATORY TRACT INFECTION
     Dosage: 200 MG, 2X/DAY (EACH 12H)
     Route: 042
     Dates: start: 20190924, end: 20191001
  7. VORICONAZOL NORMON [Suspect]
     Active Substance: VORICONAZOLE
     Indication: BRONCHOPULMONARY ASPERGILLOSIS
  8. DIAZEPAM. [Concomitant]
     Active Substance: DIAZEPAM
     Dosage: UNK
  9. LEVOFLOXACIN. [Concomitant]
     Active Substance: LEVOFLOXACIN
     Dosage: UNK
  10. ESOMEPRAZOLE. [Concomitant]
     Active Substance: ESOMEPRAZOLE MAGNESIUM
     Dosage: UNK
  11. LEVOTHYROX [Concomitant]
     Active Substance: LEVOTHYROXINE
     Dosage: UNK
  12. CRESEMBA [Suspect]
     Active Substance: ISAVUCONAZONIUM SULFATE
     Indication: PNEUMONIA
     Dosage: 200 MG, 3X/DAY (FIRST LOADING DOSE) (EACH 8H)
     Route: 042
     Dates: start: 20191002, end: 20191002
  13. CRESEMBA [Suspect]
     Active Substance: ISAVUCONAZONIUM SULFATE
     Indication: BRONCHOPULMONARY ASPERGILLOSIS
     Dosage: 200 MG, 3X/DAY (SECOND LOADING DOSE) (EACH 8H)
     Route: 042
     Dates: start: 20191002, end: 20191002
  14. CRESEMBA [Suspect]
     Active Substance: ISAVUCONAZONIUM SULFATE
     Indication: RESPIRATORY TRACT INFECTION
  15. HYDROCORTISONE. [Concomitant]
     Active Substance: HYDROCORTISONE
     Dosage: UNK

REACTIONS (1)
  - Respiratory failure [Recovered/Resolved]

NARRATIVE: CASE EVENT DATE: 20191002
